FAERS Safety Report 16474925 (Version 1)
Quarter: 2019Q2

REPORT INFORMATION
  Report Type: Spontaneous
  Country: US (occurrence: US)
  Receive Date: 20190515
  Receipt Date: 20190515
  Transmission Date: 20190711
  Serious: Yes (Hospitalization)
  Sender: FDA-Public Use
  Company Number: None

PATIENT
  Age: 82 Year
  Sex: Male

DRUGS (1)
  1. WARFARIN [Suspect]
     Active Substance: WARFARIN
     Indication: ATRIAL FIBRILLATION
     Route: 048

REACTIONS (8)
  - Haematemesis [None]
  - Haemorrhage [None]
  - Haematuria [None]
  - Haematochezia [None]
  - Fatigue [None]
  - Haemoptysis [None]
  - Asthenia [None]
  - International normalised ratio increased [None]

NARRATIVE: CASE EVENT DATE: 20180914
